FAERS Safety Report 9863407 (Version 1)
Quarter: 2014Q1

REPORT INFORMATION
  Report Type: Spontaneous
  Country: US (occurrence: US)
  Receive Date: 20140203
  Receipt Date: 20140203
  Transmission Date: 20141002
  Serious: No
  Sender: FDA-Public Use
  Company Number: US-PFIZER INC-2014027315

PATIENT
  Age: 71 Year
  Sex: Female
  Weight: 55 kg

DRUGS (4)
  1. GABAPENTIN [Suspect]
     Indication: NERVE COMPRESSION
     Dosage: 300 MG, 1X/DAY
     Dates: start: 20131230
  2. GABAPENTIN [Suspect]
     Dosage: 300 MG, 2X/DAY
     Dates: start: 20140106
  3. GABAPENTIN [Suspect]
     Dosage: 300 MG, UNK
     Dates: start: 201401
  4. LEVOTHYROXINE [Concomitant]
     Indication: THYROID DISORDER
     Dosage: 50 UG, 1X/DAY

REACTIONS (4)
  - Drug ineffective for unapproved indication [Unknown]
  - Fatigue [Unknown]
  - Pre-existing condition improved [Unknown]
  - Therapeutic response unexpected [Unknown]
